FAERS Safety Report 5788996-7 (Version None)
Quarter: 2008Q2

REPORT INFORMATION
  Report Type: 
  Country: None (occurrence: None)
  Receive Date: 20080625
  Receipt Date: 20080625
  Transmission Date: 20081010
  Serious: Yes (Hospitalization)
  Sender: FDA-Public Use
  Company Number: None

PATIENT
  Sex: Male
  Weight: 66.9509 kg

DRUGS (1)
  1. CAPECITABINE, 625 MG [Suspect]
     Indication: PANCREATIC CARCINOMA METASTATIC
     Dosage: 625 MG, Q12 HR PO D8-21
     Route: 048
     Dates: start: 20080131, end: 20080207

REACTIONS (5)
  - DEEP VEIN THROMBOSIS [None]
  - DRUG DOSE OMISSION [None]
  - NAUSEA [None]
  - PULMONARY EMBOLISM [None]
  - VOMITING [None]
